FAERS Safety Report 13166794 (Version 3)
Quarter: 2017Q2

REPORT INFORMATION
  Report Type: Spontaneous
  Country: US (occurrence: US)
  Receive Date: 20170131
  Receipt Date: 20170419
  Transmission Date: 20170830
  Serious: Yes (Other)
  Sender: FDA-Public Use
  Company Number: US-TAKEDA-2017MPI000757

PATIENT
  Sex: Male
  Weight: 96.6 kg

DRUGS (1)
  1. NINLARO [Suspect]
     Active Substance: IXAZOMIB
     Indication: PLASMA CELL MYELOMA
     Dosage: 4 MG, UNK
     Route: 048
     Dates: start: 20170104, end: 201704

REACTIONS (4)
  - Dyspepsia [Unknown]
  - Plasma cell myeloma [Unknown]
  - Platelet count decreased [Unknown]
  - White blood cell count decreased [Unknown]
